FAERS Safety Report 25545543 (Version 1)
Quarter: 2025Q3

REPORT INFORMATION
  Report Type: Spontaneous
  Country: TW (occurrence: TW)
  Receive Date: 20250711
  Receipt Date: 20250711
  Transmission Date: 20251020
  Serious: Yes (Other)
  Sender: GE HEALTHCARE
  Company Number: None

PATIENT
  Age: 72 Year
  Sex: Female

DRUGS (2)
  1. OMNIPAQUE [Suspect]
     Active Substance: IOHEXOL
     Indication: Angioplasty
     Route: 013
     Dates: start: 20250703
  2. OMNIPAQUE [Suspect]
     Active Substance: IOHEXOL
     Indication: Thrombectomy

REACTIONS (3)
  - Wound secretion [Recovered/Resolved]
  - Haematoma [Recovered/Resolved]
  - Hypotension [Recovered/Resolved]

NARRATIVE: CASE EVENT DATE: 20250703
